FAERS Safety Report 6888502-X (Version None)
Quarter: 2010Q3

REPORT INFORMATION
  Report Type: 
  Country: None (occurrence: None)
  Receive Date: 20100730
  Receipt Date: 20100719
  Transmission Date: 20110219
  Serious: Yes (Hospitalization)
  Sender: FDA-Public Use
  Company Number: PHBS2006DK00687

PATIENT
  Sex: Female
  Weight: 48.1 kg

DRUGS (4)
  1. VOLTAREN [Suspect]
     Indication: PAIN
     Dosage: 50 MG, TID
     Route: 048
     Dates: start: 20050920, end: 20050921
  2. THIOPENTAL SODIUM [Suspect]
     Indication: ANAESTHESIA
     Dosage: UNK
  3. PROPOFOL [Suspect]
     Indication: ANAESTHESIA
  4. ULTIVA [Suspect]
     Indication: ANAESTHESIA
     Dosage: UNK

REACTIONS (8)
  - BLOOD CREATININE INCREASED [None]
  - FATIGUE [None]
  - HYPERTENSION [None]
  - OEDEMA [None]
  - POLYDIPSIA [None]
  - POLYURIA [None]
  - RENAL FAILURE [None]
  - TUBULOINTERSTITIAL NEPHRITIS [None]
